FAERS Safety Report 21719177 (Version 1)
Quarter: 2022Q4

REPORT INFORMATION
  Report Type: Spontaneous
  Country: US (occurrence: US)
  Receive Date: 20221213
  Receipt Date: 20221213
  Transmission Date: 20230113
  Serious: No
  Sender: FDA-Public Use
  Company Number: US-BRISTOL-MYERS SQUIBB COMPANY-2022-151645

PATIENT
  Age: 62 Year
  Sex: Female
  Weight: 60.33 kg

DRUGS (6)
  1. REVLIMID [Suspect]
     Active Substance: LENALIDOMIDE
     Indication: Plasma cell myeloma
     Dosage: 1 CAPSULE DAILY FOR 28 DAYS, NO REST DAYS
     Route: 048
     Dates: start: 20210227
  2. ACYCLOVIR [Concomitant]
     Active Substance: ACYCLOVIR
     Indication: Product used for unknown indication
     Route: 048
  3. CENTRUM ADULT [Concomitant]
     Indication: Product used for unknown indication
     Route: 048
  4. CALTRATE 600+D PLUS [Concomitant]
     Indication: Product used for unknown indication
     Route: 048
  5. CALTRATE 600+D PLUS [Concomitant]
     Route: 048
  6. ZOMETA [Concomitant]
     Active Substance: ZOLEDRONIC ACID
     Indication: Product used for unknown indication
     Route: 042

REACTIONS (2)
  - Pain in extremity [Not Recovered/Not Resolved]
  - Off label use [Unknown]

NARRATIVE: CASE EVENT DATE: 20221128
